FAERS Safety Report 5748436-0 (Version None)
Quarter: 2008Q2

REPORT INFORMATION
  Report Type: 
  Country: None (occurrence: None)
  Receive Date: 20080523
  Receipt Date: 20080520
  Transmission Date: 20081010
  Serious: Yes (Other)
  Sender: FDA-Public Use
  Company Number: US-MERCK-0804USA03093

PATIENT
  Age: 6 Year
  Sex: Male
  Weight: 18 kg

DRUGS (1)
  1. SINGULAIR [Suspect]
     Indication: RHINITIS ALLERGIC
     Route: 048
     Dates: start: 20060515, end: 20080101

REACTIONS (4)
  - ABNORMAL BEHAVIOUR [None]
  - ANGER [None]
  - HOMICIDAL IDEATION [None]
  - SUICIDAL IDEATION [None]
